FAERS Safety Report 4845254-2 (Version None)
Quarter: 2005Q4

REPORT INFORMATION
  Report Type: 
  Country: None (occurrence: None)
  Receive Date: 20051129
  Receipt Date: 20051117
  Transmission Date: 20060501
  Serious: Yes (Hospitalization)
  Sender: FDA-Public Use
  Company Number: WAES 0511USA03025

PATIENT
  Age: 74 Year
  Sex: Female
  Weight: 63.05 kg

DRUGS (9)
  1. ZOCOR [Suspect]
     Indication: HYPERCHOLESTEROLAEMIA
     Dosage: 40 MG/DAILY/PO
     Route: 048
     Dates: start: 20030805
  2. INJ PROCRIT 1000 IU [Suspect]
     Indication: NEPHROGENIC ANAEMIA
     Dosage: 1000 IU/WKY/SC
     Route: 058
     Dates: start: 20030918
  3. AVANDIA [Concomitant]
  4. BENICAR [Concomitant]
  5. INJ PROCRIT 5000 IU [Suspect]
  6. NATURETIN [Concomitant]
  7. STARLIX [Concomitant]
  8. ASPIRIN [Concomitant]
  9. ATENOLOL [Concomitant]

REACTIONS (9)
  - ATRIAL FIBRILLATION [None]
  - CLOSTRIDIAL INFECTION [None]
  - DIZZINESS [None]
  - DYSPNOEA [None]
  - HAEMODIALYSIS [None]
  - RENAL FAILURE [None]
  - RHABDOMYOLYSIS [None]
  - VISUAL ACUITY REDUCED [None]
  - WHEEZING [None]
